FAERS Safety Report 7525225-8 (Version None)
Quarter: 2011Q2

REPORT INFORMATION
  Report Type: 
  Country: None (occurrence: None)
  Receive Date: 20110606
  Receipt Date: 20110601
  Transmission Date: 20111010
  Serious: Yes (Other)
  Sender: FDA-Public Use
  Company Number: US-AMGEN-USASP2011028038

PATIENT
  Age: 64 Year
  Sex: Male

DRUGS (3)
  1. NPLATE [Suspect]
     Dates: start: 20091120, end: 20101129
  2. NPLATE [Suspect]
     Indication: IDIOPATHIC THROMBOCYTOPENIC PURPURA
     Dosage: 8 A?G/KG, UNK
     Dates: start: 20091120, end: 20101129
  3. CORTICOSTEROIDS [Concomitant]

REACTIONS (5)
  - THERAPEUTIC RESPONSE DECREASED [None]
  - THROMBOCYTOPENIA [None]
  - ORAL PAIN [None]
  - EVANS SYNDROME [None]
  - MUCOSA VESICLE [None]
